FAERS Safety Report 10863194 (Version 3)
Quarter: 2015Q2

REPORT INFORMATION
  Report Type: Other
  Country: GB (occurrence: GB)
  Receive Date: 20150223
  Receipt Date: 20150424
  Transmission Date: 20150821
  Serious: Yes (Hospitalization, Other)
  Sender: FDA-Public Use
  Company Number: GB-SHIRE-GB201501413

PATIENT
  Sex: Female

DRUGS (1)
  1. VPRIV [Suspect]
     Active Substance: VELAGLUCERASE ALFA
     Indication: GAUCHER^S DISEASE
     Dosage: 4000 IU OTHER (FORTNIGHTLY)
     Route: 041

REACTIONS (6)
  - Osteomyelitis [Not Recovered/Not Resolved]
  - Pain in extremity [Recovering/Resolving]
  - Wound [Recovering/Resolving]
  - Depression [Unknown]
  - Groin pain [Recovering/Resolving]
  - Cellulitis [Unknown]
